FAERS Safety Report 4761581-1 (Version None)
Quarter: 2005Q3

REPORT INFORMATION
  Report Type: 
  Country: None (occurrence: None)
  Receive Date: 20050901
  Receipt Date: 20050901
  Transmission Date: 20060218
  Serious: Yes (Life-Threatening)
  Sender: FDA-Public Use
  Company Number: None

PATIENT
  Age: 79 Year
  Sex: Male

DRUGS (8)
  1. CYCLOSPORINE [Suspect]
  2. MYCOPHENOLATE- CELLCEPT [Concomitant]
  3. PREDNISONE -DELTASONE [Concomitant]
  4. CORDARONE [Concomitant]
  5. LOPRESSOR [Concomitant]
  6. PEPCID [Concomitant]
  7. ZOVIRAX [Concomitant]
  8. EFFEXOR [Concomitant]

REACTIONS (2)
  - THERAPEUTIC AGENT TOXICITY [None]
  - TREMOR [None]
